FAERS Safety Report 6089580-0 (Version None)
Quarter: 2009Q1

REPORT INFORMATION
  Report Type: 
  Country: None (occurrence: None)
  Receive Date: 20090219
  Receipt Date: 20090219
  Transmission Date: 20090719
  Serious: No
  Sender: FDA-Public Use
  Company Number: None

PATIENT
  Age: 15 Year
  Sex: Male
  Weight: 94.8018 kg

DRUGS (3)
  1. LISDEXAMFETAMINE [Suspect]
     Dosage: 140MG DAY PO
     Route: 048
     Dates: start: 20080822, end: 20080825
  2. DEPAKOTE [Concomitant]
  3. CITALOPRAM HYDROBROMIDE [Concomitant]

REACTIONS (3)
  - SWOLLEN TONGUE [None]
  - TRISMUS [None]
  - VOMITING [None]
